FAERS Safety Report 7023556-1 (Version None)
Quarter: 2010Q3

REPORT INFORMATION
  Report Type: 
  Country: None (occurrence: None)
  Receive Date: 20100929
  Receipt Date: 20100929
  Transmission Date: 20110219
  Serious: Yes (Other)
  Sender: FDA-Public Use
  Company Number: None

PATIENT
  Age: 49 Year
  Sex: Male
  Weight: 72.5755 kg

DRUGS (1)
  1. OXYCONTIN [Suspect]
     Indication: LOWER LIMB FRACTURE
     Dosage: 80 MG 3X DAILY MOUTH
     Route: 048
     Dates: start: 20020721

REACTIONS (6)
  - ABASIA [None]
  - ABDOMINAL PAIN UPPER [None]
  - DRUG INEFFECTIVE [None]
  - NAUSEA [None]
  - PAIN [None]
  - PRODUCT SOLUBILITY ABNORMAL [None]
